FAERS Safety Report 23989219 (Version 1)
Quarter: 2024Q2

REPORT INFORMATION
  Report Type: Report from Study
  Country: NZ (occurrence: None)
  Receive Date: 20240619
  Receipt Date: 20240619
  Transmission Date: 20240716
  Serious: Yes (Other)
  Sender: FDA-Public Use
  Company Number: NZ-MDD US Operations-MDD202406-002099

PATIENT
  Age: 80 Year
  Sex: Male

DRUGS (1)
  1. APOMORPHINE HYDROCHLORIDE [Suspect]
     Active Substance: APOMORPHINE HYDROCHLORIDE
     Indication: Parkinson^s disease
     Dosage: 50MG/5ML AMPOULES VIA CRONO MARK III PUMP AND NERIA NEEDLES
     Route: 058

REACTIONS (3)
  - Infusion site necrosis [Unknown]
  - Weight decreased [Unknown]
  - Infusion site nodule [Unknown]
